FAERS Safety Report 4289168-8 (Version None)
Quarter: 2004Q1

REPORT INFORMATION
  Report Type: 
  Country: None (occurrence: None)
  Receive Date: 20040206
  Receipt Date: 20040127
  Transmission Date: 20041129
  Serious: Yes (Other)
  Sender: FDA-Public Use
  Company Number: GB-JNJFOC-20040105095

PATIENT
  Age: 61 Year
  Sex: Female

DRUGS (5)
  1. REMICADE [Suspect]
     Indication: RHEUMATOID ARTHRITIS
     Dosage: 230 MG, INTRAVENOUS
     Route: 042
     Dates: start: 20021202
  2. METHOTREXATE [Concomitant]
  3. FOSAMAX [Concomitant]
  4. CO-DYDRAMOL (PARAMOL-118) [Concomitant]
  5. AMILODIPINE (AMLODIPINE) [Concomitant]

REACTIONS (4)
  - BRONCHIECTASIS [None]
  - COUGH [None]
  - PSEUDOMONAS INFECTION [None]
  - SPUTUM ABNORMAL [None]
